FAERS Safety Report 6841698-8 (Version None)
Quarter: 2010Q3

REPORT INFORMATION
  Report Type: 
  Country: None (occurrence: None)
  Receive Date: 20100714
  Receipt Date: 20070712
  Transmission Date: 20110219
  Serious: No
  Sender: FDA-Public Use
  Company Number: US-PFIZER INC-2007059571

PATIENT
  Sex: Female
  Weight: 95.4 kg

DRUGS (7)
  1. CHANTIX [Suspect]
     Indication: SMOKING CESSATION THERAPY
     Dates: start: 20070712
  2. EFFEXOR [Concomitant]
  3. LIPITOR [Concomitant]
  4. ACCUPRIL [Concomitant]
  5. NORVASC [Concomitant]
  6. ADVAIR DISKUS 100/50 [Concomitant]
  7. COMBIVENT [Concomitant]

REACTIONS (2)
  - FLATULENCE [None]
  - NAUSEA [None]
